FAERS Safety Report 4804378-6 (Version None)
Quarter: 2005Q4

REPORT INFORMATION
  Report Type: 
  Country: None (occurrence: None)
  Receive Date: 20051017
  Receipt Date: 20051005
  Transmission Date: 20060501
  Serious: Yes (Hospitalization, Other)
  Sender: FDA-Public Use
  Company Number: 2005119075

PATIENT
  Sex: Male

DRUGS (5)
  1. DETRUSITOL SR (TOLTERODINE) [Suspect]
     Indication: HYPERTONIC BLADDER
     Dosage: 4 MG (4 MG, 1 IN 1 D), ORAL; 4-5 YEARS AGO
     Route: 048
  2. SELO-ZOK (METROPROLOL SUCCINATE) [Concomitant]
  3. ADALAT [Concomitant]
  4. ATACAND [Concomitant]
  5. MAREVAN ^BRITISH DRUG HOUSES^ (WARFARIN SODIUM) [Concomitant]

REACTIONS (6)
  - ARRHYTHMIA [None]
  - CONDITION AGGRAVATED [None]
  - HEART VALVE OPERATION [None]
  - HYPERTENSION [None]
  - POST PROCEDURAL COMPLICATION [None]
  - PSORIASIS [None]
